FAERS Safety Report 7833027-8 (Version None)
Quarter: 2011Q4

REPORT INFORMATION
  Report Type: 
  Country: None (occurrence: None)
  Receive Date: 20111024
  Receipt Date: 20111010
  Transmission Date: 20120403
  Serious: Yes (Hospitalization)
  Sender: FDA-Public Use
  Company Number: US-ELI_LILLY_AND_COMPANY-US201011001626

PATIENT
  Sex: Female

DRUGS (8)
  1. FORTEO [Suspect]
     Indication: OSTEOPOROSIS
     Dosage: 20 UG, DAILY (1/D)
     Route: 065
     Dates: start: 20100801
  2. FORTEO [Suspect]
     Dosage: 20 UG, DAILY (1/D)
     Route: 065
  3. FORTEO [Suspect]
     Dosage: 20 UG, QD
     Route: 065
  4. FORTEO [Suspect]
     Dosage: 20 UG, DAILY (1/D)
     Route: 065
  5. FORTEO [Suspect]
     Dosage: 20 UG, QD
     Route: 065
  6. FORTEO [Suspect]
     Dosage: 20 UG, QD
     Route: 065
  7. FORTEO [Suspect]
     Dosage: 20 UG, QD
     Route: 065
  8. FORTEO [Suspect]
     Dosage: 20 UG, QD

REACTIONS (24)
  - INJECTION SITE HAEMORRHAGE [None]
  - ARTHRALGIA [None]
  - DRUG DOSE OMISSION [None]
  - WEIGHT DECREASED [None]
  - BACK DISORDER [None]
  - LOCAL SWELLING [None]
  - WAIST CIRCUMFERENCE INCREASED [None]
  - LIMB DISCOMFORT [None]
  - PAIN IN EXTREMITY [None]
  - INJECTION SITE ERYTHEMA [None]
  - INJECTION SITE PAIN [None]
  - BLOOD PRESSURE DECREASED [None]
  - ABDOMINAL DISTENSION [None]
  - BONE PAIN [None]
  - BACK PAIN [None]
  - MALAISE [None]
  - HIATUS HERNIA [None]
  - DYSPEPSIA [None]
  - HOSPITALISATION [None]
  - SPINAL DISORDER [None]
  - CONSTIPATION [None]
  - DIARRHOEA [None]
  - WEIGHT FLUCTUATION [None]
  - INJECTION SITE HAEMATOMA [None]
